FAERS Safety Report 7808768-9 (Version None)
Quarter: 2011Q4

REPORT INFORMATION
  Report Type: 
  Country: None (occurrence: None)
  Receive Date: 20111012
  Receipt Date: 20110929
  Transmission Date: 20120403
  Serious: Yes (Other)
  Sender: FDA-Public Use
  Company Number: PHHY2010MX77555

PATIENT
  Sex: Female

DRUGS (1)
  1. DIOVAN HCT [Suspect]
     Indication: HYPERTENSION
     Dosage: 2 TABLETS (160/25 MG) DAILY
     Route: 048
     Dates: start: 20050101

REACTIONS (4)
  - HIATUS HERNIA [None]
  - ABDOMINAL PAIN [None]
  - PAIN [None]
  - FREQUENT BOWEL MOVEMENTS [None]
